FAERS Safety Report 15238856 (Version 1)
Quarter: 2018Q3

REPORT INFORMATION
  Report Type: Spontaneous
  Country: US (occurrence: US)
  Receive Date: 20180710
  Receipt Date: 20180710
  Transmission Date: 20181010
  Serious: Yes (Other)
  Sender: FDA-Public Use
  Company Number: None

PATIENT
  Age: 43 Year
  Sex: Female
  Weight: 81.5 kg

DRUGS (5)
  1. MERCAPTOPURINE. [Suspect]
     Active Substance: MERCAPTOPURINE
     Dates: end: 20180508
  2. CYTARABINE. [Suspect]
     Active Substance: CYTARABINE
     Dates: end: 20180504
  3. METHOTREXATE. [Suspect]
     Active Substance: METHOTREXATE
     Dates: end: 20180516
  4. ONCASPAR [Suspect]
     Active Substance: PEGASPARGASE
     Dates: end: 20180509
  5. CYCLOPHOSPHAMIDE. [Suspect]
     Active Substance: CYCLOPHOSPHAMIDE
     Dates: end: 20180508

REACTIONS (6)
  - Abdominal pain [None]
  - Gastritis [None]
  - Dehydration [None]
  - Nausea [None]
  - Vomiting [None]
  - Helicobacter test [None]

NARRATIVE: CASE EVENT DATE: 20180601
